FAERS Safety Report 18364348 (Version 5)
Quarter: 2021Q2

REPORT INFORMATION
  Report Type: Spontaneous
  Country: PT (occurrence: PT)
  Receive Date: 20201009
  Receipt Date: 20210514
  Transmission Date: 20210717
  Serious: Yes (Death, Life-Threatening, Hospitalization, Other)
  Sender: FDA-Public Use
  Company Number: PT-AUROBINDO-AUR-APL-2020-051608

PATIENT
  Age: 65 Year
  Sex: Male

DRUGS (1)
  1. AMIODARONE 200MG [Suspect]
     Active Substance: AMIODARONE
     Indication: ATRIAL FIBRILLATION
     Dosage: 200 MILLIGRAM, ONCE A DAY
     Route: 065

REACTIONS (11)
  - Dyspnoea at rest [Fatal]
  - Asthenia [Fatal]
  - Hypoxia [Fatal]
  - Crepitations [Fatal]
  - Drug abuse [Unknown]
  - Pulmonary toxicity [Fatal]
  - Overdose [Unknown]
  - Toxicity to various agents [Fatal]
  - Lung infiltration [Fatal]
  - Organising pneumonia [Fatal]
  - Condition aggravated [Fatal]
